FAERS Safety Report 5986047-2 (Version None)
Quarter: 2008Q4

REPORT INFORMATION
  Report Type: 
  Country: None (occurrence: None)
  Receive Date: 20081209
  Receipt Date: 20081125
  Transmission Date: 20090506
  Serious: Yes (Other)
  Sender: FDA-Public Use
  Company Number: US-ELI_LILLY_AND_COMPANY-US200711007004

PATIENT
  Sex: Male
  Weight: 104.31 kg

DRUGS (1)
  1. ZYPREXA [Suspect]
     Dosage: 7.5 MG, UNK
     Dates: start: 20060901, end: 20070330

REACTIONS (6)
  - ANXIETY [None]
  - BLOOD URINE PRESENT [None]
  - DIABETES MELLITUS [None]
  - EMOTIONAL DISTRESS [None]
  - HYPERTENSION [None]
  - URINARY BLADDER HAEMORRHAGE [None]
